FAERS Safety Report 10233728 (Version 2)
Quarter: 2014Q2

REPORT INFORMATION
  Report Type: Spontaneous
  Country: US (occurrence: US)
  Receive Date: 20140612
  Receipt Date: 20140612
  Transmission Date: 20141212
  Serious: Yes (Other)
  Sender: FDA-Public Use
  Company Number: US-ASTRAZENECA-2004UW09694

PATIENT
  Age: 77 Year
  Sex: Female
  Weight: 56.7 kg

DRUGS (29)
  1. CRESTOR [Suspect]
     Indication: BLOOD CHOLESTEROL INCREASED
     Route: 048
     Dates: start: 200402
  2. CRESTOR [Suspect]
     Indication: BLOOD CHOLESTEROL INCREASED
     Route: 048
     Dates: start: 200402
  3. NEXIUM [Suspect]
     Indication: DYSPEPSIA
     Route: 048
     Dates: start: 2005
  4. NEXIUM [Suspect]
     Indication: DYSPEPSIA
     Route: 048
     Dates: start: 2005
  5. NEXIUM [Suspect]
     Indication: GASTROOESOPHAGEAL REFLUX DISEASE
     Route: 048
     Dates: start: 2005
  6. NEXIUM 24 HR [Suspect]
     Indication: DYSPEPSIA
     Route: 048
     Dates: start: 20140602
  7. NEXIUM 24 HR [Suspect]
     Indication: DYSPEPSIA
     Route: 048
     Dates: start: 20140602
  8. NEXIUM 24 HR [Suspect]
     Indication: GASTROOESOPHAGEAL REFLUX DISEASE
     Route: 048
     Dates: start: 20140602
  9. HYZAAR [Concomitant]
     Indication: BLOOD PRESSURE ABNORMAL
     Dosage: 100/12.5 MG QD
     Route: 048
  10. ASA [Concomitant]
     Indication: CARDIAC DISORDER
     Route: 048
  11. CELEBREX [Concomitant]
  12. GLUCOSAMINE CHONDROITIN [Concomitant]
  13. WELCOHL [Concomitant]
     Indication: HYPERTENSION
     Route: 048
     Dates: start: 2005
  14. CARVEDILOL [Concomitant]
     Indication: BLOOD PRESSURE ABNORMAL
     Route: 048
  15. CARVEDILOL [Concomitant]
     Indication: CARDIAC DISORDER
     Route: 048
  16. ZETIA [Concomitant]
     Indication: BLOOD CHOLESTEROL ABNORMAL
     Route: 048
  17. ZETIA [Concomitant]
     Indication: CARDIAC DISORDER
     Route: 048
  18. SPIRIVA [Concomitant]
     Indication: DYSPNOEA
     Dosage: 18 MCG PRN
     Route: 048
  19. SPIRIVA [Concomitant]
     Indication: ENVIRONMENTAL EXPOSURE
     Dosage: 18 MCG PRN
     Route: 048
  20. VITAMIN D [Concomitant]
     Indication: VITAMIN SUPPLEMENTATION
     Route: 048
  21. MULTIVITAMIN [Concomitant]
     Indication: VITAMIN SUPPLEMENTATION
  22. COQ10 [Concomitant]
     Indication: VITAMIN SUPPLEMENTATION
  23. BIOTIN [Concomitant]
     Indication: VITAMIN SUPPLEMENTATION
  24. FISH OIL [Concomitant]
     Indication: VITAMIN SUPPLEMENTATION
  25. TOPROL XL [Concomitant]
  26. FOLIC ACID [Concomitant]
  27. VITAMIN B6 [Concomitant]
  28. VITAMIN B12 [Concomitant]
  29. ANTACIDS [Concomitant]

REACTIONS (13)
  - Myocardial infarction [Unknown]
  - Muscle spasms [Unknown]
  - Fatigue [Unknown]
  - Dyspepsia [Unknown]
  - Throat irritation [Unknown]
  - Oesophageal polyp [Unknown]
  - Chronic obstructive pulmonary disease [Unknown]
  - Arthritis [Unknown]
  - Carotid artery disease [Unknown]
  - Dysphonia [Not Recovered/Not Resolved]
  - Myalgia [Unknown]
  - Intentional product misuse [Unknown]
  - Drug ineffective [Unknown]
